FAERS Safety Report 7128805-7 (Version None)
Quarter: 2010Q4

REPORT INFORMATION
  Report Type: 
  Country: None (occurrence: None)
  Receive Date: 20101130
  Receipt Date: 20101123
  Transmission Date: 20110411
  Serious: Yes (Death, Hospitalization)
  Sender: FDA-Public Use
  Company Number: DE-ELI_LILLY_AND_COMPANY-DE201011004357

PATIENT
  Sex: Female
  Weight: 65 kg

DRUGS (5)
  1. BYETTA [Suspect]
     Indication: DIABETES MELLITUS
     Dosage: 10 UG, 2/D
     Route: 058
     Dates: start: 20100920, end: 20101027
  2. METFORMIN [Concomitant]
     Indication: DIABETES MELLITUS
     Dosage: 1000 MG, UNK
     Route: 048
  3. GLIMEPIRID [Concomitant]
     Indication: DIABETES MELLITUS
     Dosage: 6 MG, UNK
     Route: 048
  4. L-DOPA+BENSERAZIDE [Concomitant]
     Indication: PARKINSON'S DISEASE
     Dosage: 125 D/F, 3/D
     Route: 048
  5. CARDIOVASCULAR SYSTEM DRUGS [Concomitant]

REACTIONS (1)
  - RENAL FAILURE [None]
